FAERS Safety Report 11413697 (Version 1)
Quarter: 2015Q3

REPORT INFORMATION
  Report Type: Spontaneous
  Country: BR (occurrence: BR)
  Receive Date: 20150824
  Receipt Date: 20150824
  Transmission Date: 20151125
  Serious: Yes (Other)
  Sender: FDA-Public Use
  Company Number: BR-PFIZER INC-2015273728

PATIENT
  Age: 80 Year
  Sex: Female

DRUGS (1)
  1. AROMASIN [Suspect]
     Active Substance: EXEMESTANE
     Indication: INVASIVE BREAST CARCINOMA
     Dosage: UNK
     Dates: start: 201505

REACTIONS (1)
  - Progesterone increased [Unknown]

NARRATIVE: CASE EVENT DATE: 20150803
